FAERS Safety Report 9649150 (Version 1)
Quarter: 2013Q4

REPORT INFORMATION
  Report Type: Spontaneous
  Country: US (occurrence: US)
  Receive Date: 20131028
  Receipt Date: 20131028
  Transmission Date: 20140711
  Serious: No
  Sender: FDA-Public Use
  Company Number: US-TEVA-440319USA

PATIENT
  Age: 35 Year
  Sex: Female
  Weight: 84.44 kg

DRUGS (4)
  1. FENTORA [Suspect]
     Indication: PAIN
     Dosage: 200 AND 400 MCG
     Dates: start: 201210, end: 201212
  2. FENTORA [Suspect]
     Dosage: 600 MCG 3 TIMES A DAY AND AN EXTRA ONE AS NEEDED.
     Dates: start: 201212
  3. BACLOFEN [Concomitant]
     Indication: PAIN MANAGEMENT
  4. LISINOPRIL [Concomitant]
     Indication: HYPERTENSION

REACTIONS (7)
  - Pain [Not Recovered/Not Resolved]
  - Drug ineffective [Recovered/Resolved]
  - Off label use [Unknown]
  - Fall [Recovered/Resolved]
  - Movement disorder [Unknown]
  - Drug prescribing error [Unknown]
  - Impaired work ability [Unknown]
